FAERS Safety Report 18415175 (Version 1)
Quarter: 2020Q4

REPORT INFORMATION
  Report Type: Spontaneous
  Country: US (occurrence: US)
  Receive Date: 20201022
  Receipt Date: 20201022
  Transmission Date: 20210114
  Serious: No
  Sender: FDA-Public Use
  Company Number: None

PATIENT
  Age: 70 Year
  Sex: Male
  Weight: 112.9 kg

DRUGS (2)
  1. HYDROCHLOROTHIAZIDE/LISNOPRIL(HYDROCHLOROTHIAZIDE 25MG/LISINOPRIL 20MG [Suspect]
     Active Substance: HYDROCHLOROTHIAZIDE\LISINOPRIL
     Indication: HYPERTENSION
     Route: 048
     Dates: start: 20140715, end: 20160112
  2. EPINEPHRINE, RACEMIC (EPINEPHRINE, RACEMIC HCL 2.25% SOLN, INHL) [Suspect]
     Active Substance: EPINEPHRINE
     Indication: STRIDOR
     Route: 055
     Dates: start: 20160110, end: 20160110

REACTIONS (3)
  - Delirium [None]
  - Confusional state [None]
  - Tremor [None]

NARRATIVE: CASE EVENT DATE: 20160113
